FAERS Safety Report 9740169 (Version 1)
Quarter: 2013Q4

REPORT INFORMATION
  Report Type: Report from Study
  Country: US (occurrence: US)
  Receive Date: 20131209
  Receipt Date: 20131209
  Transmission Date: 20140711
  Serious: Yes (Other)
  Sender: FDA-Public Use
  Company Number: US-TEVA-448531USA

PATIENT
  Sex: Female

DRUGS (1)
  1. COPAXONE [Suspect]
     Indication: MULTIPLE SCLEROSIS
     Dates: start: 20130107

REACTIONS (4)
  - Chronic obstructive pulmonary disease [Unknown]
  - Fibromyalgia [Unknown]
  - Multiple sclerosis [Unknown]
  - Pain [Unknown]
